FAERS Safety Report 11148327 (Version 1)
Quarter: 2015Q2

REPORT INFORMATION
  Report Type: Spontaneous
  Country: US (occurrence: US)
  Receive Date: 20150529
  Receipt Date: 20150529
  Transmission Date: 20150821
  Serious: Yes (Other)
  Sender: FDA-Public Use
  Company Number: PHHY2015US064278

PATIENT
  Age: 54 Year
  Sex: Male

DRUGS (1)
  1. EVEROLIMUS [Suspect]
     Active Substance: EVEROLIMUS
     Indication: PANCREATIC NEUROENDOCRINE TUMOUR
     Dosage: 10 MG, QD
     Route: 065

REACTIONS (11)
  - Dyspnoea [Unknown]
  - Upper respiratory tract infection [Unknown]
  - Joint swelling [Recovering/Resolving]
  - Herpes zoster [Recovering/Resolving]
  - Asthenia [Recovering/Resolving]
  - Rash erythematous [Unknown]
  - Stomatitis [Unknown]
  - Oedema peripheral [Recovering/Resolving]
  - Hyperglycaemia [Unknown]
  - Fatigue [Recovering/Resolving]
  - Headache [Unknown]
